FAERS Safety Report 25037047 (Version 1)
Quarter: 2025Q1

REPORT INFORMATION
  Report Type: Spontaneous
  Country: PR (occurrence: US)
  Receive Date: 20250304
  Receipt Date: 20250304
  Transmission Date: 20250409
  Serious: No
  Sender: SANDOZ
  Company Number: PR-SANDOZ-SDZ2023US077351

PATIENT
  Sex: Male

DRUGS (1)
  1. OMNITROPE [Suspect]
     Active Substance: SOMATROPIN
     Indication: Hypopituitarism
     Dosage: 1.6 ML DAILY 6 DAYS ON + 7 DAYS OFF
     Route: 058
     Dates: start: 20230913

REACTIONS (2)
  - Injection site reaction [Recovered/Resolved with Sequelae]
  - Injection site pain [Recovered/Resolved with Sequelae]
